FAERS Safety Report 23573971 (Version 1)
Quarter: 2024Q1

REPORT INFORMATION
  Report Type: Spontaneous
  Country: FR (occurrence: FR)
  Receive Date: 20240228
  Receipt Date: 20240228
  Transmission Date: 20240410
  Serious: Yes (Death)
  Sender: FDA-Public Use
  Company Number: FR-AMGEN-FRASP2024035762

PATIENT

DRUGS (6)
  1. FILGRASTIM [Suspect]
     Active Substance: FILGRASTIM
     Indication: Bladder cancer
     Dosage: 5 MICROGRAM/KILOGRAM
     Route: 042
  2. METHOTREXATE [Concomitant]
     Active Substance: METHOTREXATE
     Indication: Bladder cancer
     Dosage: 30 MILLIGRAM/SQ. METER
     Route: 042
  3. VINBLASTINE [Concomitant]
     Active Substance: VINBLASTINE
     Indication: Bladder cancer
     Dosage: 3 MILLIGRAM/SQ. METER
     Route: 042
  4. DOXORUBICIN [Concomitant]
     Active Substance: DOXORUBICIN
     Indication: Bladder cancer
     Dosage: 30 MILLIGRAM/SQ. METER
     Route: 042
  5. CISPLATIN [Concomitant]
     Active Substance: CISPLATIN
     Indication: Bladder cancer
     Dosage: 70 MILLIGRAM/SQ. METER
     Route: 042
  6. GEMCITABINE [Concomitant]
     Active Substance: GEMCITABINE
     Indication: Bladder cancer
     Dosage: 1250 MILLIGRAM/SQ. METER
     Route: 042

REACTIONS (9)
  - Death [Fatal]
  - Sudden death [Fatal]
  - Bladder transitional cell carcinoma [Fatal]
  - Cardiovascular disorder [Fatal]
  - Neoplasm malignant [Fatal]
  - Ill-defined disorder [Fatal]
  - Pulmonary embolism [Fatal]
  - Septic shock [Fatal]
  - Procedural complication [Unknown]
